FAERS Safety Report 18212070 (Version 3)
Quarter: 2025Q2

REPORT INFORMATION
  Report Type: Spontaneous
  Country: IT (occurrence: IT)
  Receive Date: 20200831
  Receipt Date: 20250627
  Transmission Date: 20250717
  Serious: Yes (Death, Other)
  Sender: AUROBINDO
  Company Number: IT-BRISTOL-MYERS SQUIBB COMPANY-BMS-2020-066050

PATIENT
  Age: 51 Year
  Sex: Male

DRUGS (6)
  1. CARBOPLATIN [Suspect]
     Active Substance: CARBOPLATIN
     Indication: Salivary gland cancer
     Dosage: UNK , EVERY WEEK (AUC2) FOURTH-LINE CT
     Route: 065
  2. PACLITAXEL [Suspect]
     Active Substance: PACLITAXEL
     Indication: Salivary gland cancer
     Dosage: 80 MILLIGRAM/SQ. METER, EVERY WEEK FOURTH-LINE CT
     Route: 065
  3. VINORELBINE [Suspect]
     Active Substance: VINORELBINE TARTRATE
     Indication: Salivary gland cancer
     Route: 065
  4. TRASTUZUMAB [Suspect]
     Active Substance: TRASTUZUMAB
     Indication: Salivary gland cancer
     Dosage: 4 MILLIGRAM/KILOGRAM, EVERY WEEK FOURTH-LINE CT, LOADING DOSE
     Route: 065
  5. TRASTUZUMAB [Suspect]
     Active Substance: TRASTUZUMAB
     Dosage: 2 MILLIGRAM/KILOGRAM, EVERY WEEK
     Route: 065
  6. TRASTUZUMAB [Suspect]
     Active Substance: TRASTUZUMAB
     Dosage: 18 MILLIGRAM/KILOGRAM, EVERY WEEK 6 MG/KG (3-WEEKLY)
     Route: 065

REACTIONS (6)
  - Death [Fatal]
  - Pneumonia [Recovered/Resolved]
  - Febrile neutropenia [Recovered/Resolved]
  - Ejection fraction decreased [Unknown]
  - Streptococcal endocarditis [Unknown]
  - Off label use [Unknown]
